FAERS Safety Report 5236592-2 (Version None)
Quarter: 2007Q1

REPORT INFORMATION
  Report Type: 
  Country: None (occurrence: None)
  Receive Date: 20070208
  Receipt Date: 20070131
  Transmission Date: 20070707
  Serious: Yes (Other)
  Sender: FDA-Public Use
  Company Number: 233976

PATIENT
  Age: 75 Year
  Sex: Male

DRUGS (5)
  1. LUCENTIS [Suspect]
     Indication: MACULAR DEGENERATION
     Dates: start: 20061023
  2. LIPITOR [Concomitant]
  3. VICODIN [Concomitant]
  4. FLOMAX [Concomitant]
  5. EYE VITAMINS (VITAMINS NOS) [Concomitant]

REACTIONS (7)
  - BRONCHITIS [None]
  - CORNEAL ABRASION [None]
  - EYE PAIN [None]
  - PNEUMONIA [None]
  - SINUSITIS [None]
  - VISUAL ACUITY REDUCED [None]
  - VISUAL DISTURBANCE [None]
